FAERS Safety Report 14263150 (Version 2)
Quarter: 2017Q4

REPORT INFORMATION
  Report Type: Spontaneous
  Country: HR (occurrence: HR)
  Receive Date: 20171208
  Receipt Date: 20171227
  Transmission Date: 20180321
  Serious: Yes (Death, Hospitalization)
  Sender: FDA-Public Use
  Company Number: HR-BAYER-2017-231370

PATIENT
  Sex: Male

DRUGS (2)
  1. XOFIGO [Suspect]
     Active Substance: RADIUM RA-223 DICHLORIDE
     Indication: METASTASES TO BONE
  2. XOFIGO [Suspect]
     Active Substance: RADIUM RA-223 DICHLORIDE
     Indication: PROSTATE CANCER METASTATIC
     Dosage: UNK
     Dates: start: 20171109

REACTIONS (7)
  - Decreased appetite [None]
  - Asthenia [None]
  - Bone pain [None]
  - Prostate cancer metastatic [Fatal]
  - Vomiting [None]
  - Cardiopulmonary failure [Fatal]
  - Coma [Fatal]

NARRATIVE: CASE EVENT DATE: 20171121
